FAERS Safety Report 8998212 (Version 2)
Quarter: 2013Q1

REPORT INFORMATION
  Report Type: Spontaneous
  Country: DE (occurrence: DE)
  Receive Date: 20130104
  Receipt Date: 20130222
  Transmission Date: 20140127
  Serious: Yes (Hospitalization, Other)
  Sender: FDA-Public Use
  Company Number: PHHY2013DE001072

PATIENT
  Sex: Female

DRUGS (3)
  1. EXTAVIA [Suspect]
     Indication: MULTIPLE SCLEROSIS
     Dosage: 250 UG/ML EVERY OTHER DAY
     Route: 058
     Dates: start: 20100416
  2. AMINEURIN [Concomitant]
     Dosage: 50 MG, DAILY
     Route: 048
  3. GABAPENTINE [Concomitant]
     Dosage: 3 DF, DAILY

REACTIONS (5)
  - Abscess bacterial [Recovering/Resolving]
  - Pain [Unknown]
  - Asthma [Unknown]
  - Respiratory disorder [Not Recovered/Not Resolved]
  - Diarrhoea [Recovered/Resolved]
